FAERS Safety Report 12507339 (Version 14)
Quarter: 2017Q3

REPORT INFORMATION
  Report Type: Report from Study
  Country: CO (occurrence: CO)
  Receive Date: 20160629
  Receipt Date: 20170905
  Transmission Date: 20171127
  Serious: Yes (Hospitalization, Other)
  Sender: FDA-Public Use
  Company Number: CO-ORION CORPORATION ORION PHARMA-ENTC2016-0342

PATIENT
  Age: 67 Year
  Sex: Female
  Weight: 44 kg

DRUGS (11)
  1. STALEVO [Suspect]
     Active Substance: CARBIDOPA\ENTACAPONE\LEVODOPA
     Indication: PARKINSON^S DISEASE
     Route: 048
  2. OMEPRAZOLE. [Concomitant]
     Active Substance: OMEPRAZOLE
     Route: 065
     Dates: start: 20150909
  3. REVOLADE [Suspect]
     Active Substance: ELTROMBOPAG
     Indication: IMMUNE THROMBOCYTOPENIC PURPURA
     Route: 048
     Dates: start: 20151008, end: 201610
  4. INSULIN [Concomitant]
     Active Substance: INSULIN NOS
     Route: 065
  5. PREDNISOLON [Concomitant]
     Active Substance: PREDNISOLONE
     Route: 065
  6. MIRAPEX [Concomitant]
     Active Substance: PRAMIPEXOLE DIHYDROCHLORIDE
     Route: 065
     Dates: start: 20160517
  7. ENTACAPONE. [Concomitant]
     Active Substance: ENTACAPONE
     Route: 065
  8. AMLODIPINE [Concomitant]
     Active Substance: AMLODIPINE BESYLATE
     Route: 065
  9. LOSARTAN. [Suspect]
     Active Substance: LOSARTAN
     Indication: HYPERTENSION
     Route: 048
  10. LEVODOPA [Concomitant]
     Active Substance: LEVODOPA
     Route: 065
  11. CARBIDOPA. [Concomitant]
     Active Substance: CARBIDOPA
     Route: 065

REACTIONS (41)
  - Gastritis [Not Recovered/Not Resolved]
  - Cardiac failure [Unknown]
  - Hypertension [Unknown]
  - Inflammation [Unknown]
  - General physical health deterioration [Unknown]
  - Lacrimation increased [Unknown]
  - Agitation [Unknown]
  - Headache [Unknown]
  - Tachycardia [Unknown]
  - Dyskinesia [Unknown]
  - Amnesia [Unknown]
  - Erythema [Unknown]
  - Blood glucose decreased [Unknown]
  - Abdominal neoplasm [Unknown]
  - Dysstasia [Unknown]
  - Osteoporosis [Unknown]
  - Malaise [Unknown]
  - Yellow skin [Unknown]
  - Colitis [Unknown]
  - Neck pain [Unknown]
  - Alopecia [Unknown]
  - Mouth haemorrhage [Unknown]
  - Nasopharyngitis [Unknown]
  - Thrombocytopenia [Unknown]
  - Feeling abnormal [Unknown]
  - Diabetes mellitus inadequate control [Unknown]
  - Fatigue [Unknown]
  - Aphonia [Unknown]
  - Insomnia [Unknown]
  - Asthenia [Unknown]
  - Contusion [Unknown]
  - Parkinson^s disease [Unknown]
  - Visual impairment [Unknown]
  - Weight decreased [Unknown]
  - Decreased appetite [Unknown]
  - Pain in extremity [Unknown]
  - Salivary hypersecretion [Unknown]
  - Hyperhidrosis [Unknown]
  - Anxiety [Unknown]
  - Depression [Unknown]
  - Rash macular [Unknown]

NARRATIVE: CASE EVENT DATE: 20161129
